FAERS Safety Report 13258602 (Version 1)
Quarter: 2017Q1

REPORT INFORMATION
  Report Type: Spontaneous
  Country: FR (occurrence: FR)
  Receive Date: 20170222
  Receipt Date: 20170222
  Transmission Date: 20170428
  Serious: Yes (Other)
  Sender: FDA-Public Use
  Company Number: FR-BRISTOL-MYERS SQUIBB COMPANY-BMS-2017-013595

PATIENT
  Age: 29 Year
  Sex: Male

DRUGS (1)
  1. ABILIFY [Suspect]
     Active Substance: ARIPIPRAZOLE
     Indication: PSYCHOTIC DISORDER
     Dosage: UNK
     Route: 048
     Dates: start: 20170208

REACTIONS (8)
  - Tremor [Not Recovered/Not Resolved]
  - Gait disturbance [Not Recovered/Not Resolved]
  - Blood creatine phosphokinase increased [Not Recovered/Not Resolved]
  - Hiccups [Not Recovered/Not Resolved]
  - General physical health deterioration [Not Recovered/Not Resolved]
  - Product use issue [Unknown]
  - Choking [Not Recovered/Not Resolved]
  - Dyskinesia [Not Recovered/Not Resolved]

NARRATIVE: CASE EVENT DATE: 20170208
